FAERS Safety Report 9526245 (Version 2)
Quarter: 2013Q3

REPORT INFORMATION
  Report Type: Spontaneous
  Country: JP (occurrence: JP)
  Receive Date: 20130916
  Receipt Date: 20130924
  Transmission Date: 20140515
  Serious: Yes (Other)
  Sender: FDA-Public Use
  Company Number: JP-PFIZER INC-2013258998

PATIENT
  Age: 35 Year
  Sex: Male

DRUGS (1)
  1. ZITHROMAC [Suspect]
     Dosage: 500 MG, PER DAY
     Route: 048

REACTIONS (1)
  - Rhabdomyolysis [Recovered/Resolved]
